FAERS Safety Report 6133329-X (Version None)
Quarter: 2009Q1

REPORT INFORMATION
  Report Type: 
  Country: None (occurrence: None)
  Receive Date: 20090326
  Receipt Date: 20090320
  Transmission Date: 20090719
  Serious: Yes (Other)
  Sender: FDA-Public Use
  Company Number: FR-AVENTIS-200910110FR

PATIENT
  Age: 25 Year
  Sex: Female

DRUGS (3)
  1. BIRODOGYL [Suspect]
     Route: 048
     Dates: start: 20080818, end: 20080821
  2. DAILY [Concomitant]
     Indication: CONTRACEPTION
     Route: 048
  3. PARACETAMOL [Concomitant]

REACTIONS (10)
  - ABDOMINAL PAIN [None]
  - ANOREXIA [None]
  - DRUG RASH WITH EOSINOPHILIA AND SYSTEMIC SYMPTOMS [None]
  - EOSINOPHILIA [None]
  - LIVER FUNCTION TEST ABNORMAL [None]
  - LYMPHADENOPATHY [None]
  - MYALGIA [None]
  - NAUSEA [None]
  - RASH [None]
  - VOMITING [None]
